FAERS Safety Report 9627857 (Version 1)
Quarter: 2013Q4

REPORT INFORMATION
  Report Type: Spontaneous
  Country: US (occurrence: US)
  Receive Date: 20131016
  Receipt Date: 20131016
  Transmission Date: 20140711
  Serious: Yes (Other)
  Sender: FDA-Public Use
  Company Number: US-GLAXOSMITHKLINE-A1045643A

PATIENT
  Age: 60 Year
  Sex: Male

DRUGS (1)
  1. VOTRIENT [Suspect]
     Indication: CARDIAC NEOPLASM MALIGNANT
     Dosage: 400MG PER DAY
     Route: 065

REACTIONS (3)
  - Bacteraemia [Unknown]
  - Fatigue [Unknown]
  - Nausea [Unknown]
